FAERS Safety Report 13710581 (Version 1)
Quarter: 2017Q2

REPORT INFORMATION
  Report Type: Spontaneous
  Country: US (occurrence: US)
  Receive Date: 20170630
  Receipt Date: 20170630
  Transmission Date: 20170830
  Serious: Yes (Hospitalization, Other)
  Sender: FDA-Public Use
  Company Number: None

PATIENT
  Age: 50 Year
  Sex: Male
  Weight: 72 kg

DRUGS (4)
  1. BENZODIAZAPINES. [Concomitant]
  2. CLONAZEPAM. [Suspect]
     Active Substance: CLONAZEPAM
     Indication: PANIC REACTION
     Dosage: ?          OTHER STRENGTH:MG;QUANTITY:3 TABLET(S);?
     Route: 048
  3. DIAZAPAM 10 MG GEL [Concomitant]
     Active Substance: DIAZEPAM
  4. CLONAZEPAM. [Suspect]
     Active Substance: CLONAZEPAM
     Indication: ANXIETY
     Dosage: ?          OTHER STRENGTH:MG;QUANTITY:3 TABLET(S);?
     Route: 048

REACTIONS (7)
  - Anxiety [None]
  - Myalgia [None]
  - Depersonalisation/derealisation disorder [None]
  - Insomnia [None]
  - Derealisation [None]
  - Chest pain [None]
  - Withdrawal syndrome [None]

NARRATIVE: CASE EVENT DATE: 20150926
